FAERS Safety Report 14951263 (Version 1)
Quarter: 2018Q2

REPORT INFORMATION
  Report Type: Spontaneous
  Country: RU (occurrence: RU)
  Receive Date: 20180530
  Receipt Date: 20180530
  Transmission Date: 20180711
  Serious: Yes (Other)
  Sender: FDA-Public Use
  Company Number: RU-ASTRAZENECA-2018SE69359

PATIENT
  Age: 62 Year
  Sex: Female

DRUGS (2)
  1. BASAL INSULIN [Concomitant]
     Active Substance: INSULIN HUMAN
  2. FORXIGA [Suspect]
     Active Substance: DAPAGLIFLOZIN
     Route: 048

REACTIONS (1)
  - Ketonuria [Unknown]
